FAERS Safety Report 8906164 (Version 1)
Quarter: 2012Q4

REPORT INFORMATION
  Report Type: Spontaneous
  Country: CZ (occurrence: None)
  Receive Date: 20121109
  Receipt Date: 20121109
  Transmission Date: 20130627
  Serious: Yes (Hospitalization, Other)
  Sender: FDA-Public Use
  Company Number: DAV-AE-NIL-12-01

PATIENT
  Age: 25 Year
  Sex: Female

DRUGS (1)
  1. NYSTATIN [Suspect]
     Indication: VULVOVAGINITIS
     Dates: start: 200201

REACTIONS (4)
  - Toxic epidermal necrolysis [None]
  - Sepsis [None]
  - Aspartate aminotransferase increased [None]
  - Leukocytosis [None]
